FAERS Safety Report 10961014 (Version 1)
Quarter: 2015Q1

REPORT INFORMATION
  Report Type: Spontaneous
  Country: US (occurrence: US)
  Receive Date: 20150327
  Receipt Date: 20150327
  Transmission Date: 20150721
  Serious: Yes (Death)
  Sender: FDA-Public Use
  Company Number: US-CIPLA LTD.-2015US02301

PATIENT

DRUGS (6)
  1. QUETIAPINE [Suspect]
     Active Substance: QUETIAPINE
  2. ETHANOL [Suspect]
     Active Substance: ALCOHOL
  3. COCAINE [Suspect]
     Active Substance: COCAINE
  4. CITALOPRAM [Suspect]
     Active Substance: CITALOPRAM HYDROBROMIDE
  5. DIPHENHYDRAMINE [Suspect]
     Active Substance: DIPHENHYDRAMINE
  6. VENLAFAXINE [Suspect]
     Active Substance: VENLAFAXINE HYDROCHLORIDE

REACTIONS (1)
  - Completed suicide [Fatal]
